FAERS Safety Report 18140638 (Version 2)
Quarter: 2020Q3

REPORT INFORMATION
  Report Type: Report from Study
  Country: None (occurrence: CH)
  Receive Date: 20200812
  Receipt Date: 20200907
  Transmission Date: 20201103
  Serious: Yes (Death)
  Sender: FDA-Public Use
  Company Number: CH-ABBVIE-20K-151-3521665-00

PATIENT
  Age: 71 Year
  Sex: Female

DRUGS (3)
  1. DUODOPA [Suspect]
     Active Substance: CARBIDOPA\LEVODOPA
     Dosage: MD: 6.8 ML, CRD: 2.8 ML/H, CRN: 1.6 ML/H, ED: 1.6 ML / 1 CASSETTE PER DAY 24 H THERAPY
     Route: 050
     Dates: start: 20180307
  2. DUODOPA [Suspect]
     Active Substance: CARBIDOPA\LEVODOPA
     Indication: PARKINSON^S DISEASE
     Dosage: 20 MG/ML 5 MG/ML
     Route: 050
     Dates: start: 20160825, end: 20170502
  3. DUODOPA [Suspect]
     Active Substance: CARBIDOPA\LEVODOPA
     Dosage: MD: 6.8 ML, CRD: 3 ML/H, CRN: 1.6 ML/H, ED: 1.6 ML 24 H THERAPY
     Route: 050
     Dates: start: 20170502, end: 20180307

REACTIONS (1)
  - Respiratory failure [Fatal]

NARRATIVE: CASE EVENT DATE: 20200810
